FAERS Safety Report 18053981 (Version 4)
Quarter: 2021Q2

REPORT INFORMATION
  Report Type: Spontaneous
  Country: US (occurrence: US)
  Receive Date: 20200722
  Receipt Date: 20210421
  Transmission Date: 20210717
  Serious: No
  Sender: FDA-Public Use
  Company Number: US-PFIZER INC-2020277689

PATIENT
  Age: 62 Year
  Sex: Female
  Weight: 83.9 kg

DRUGS (4)
  1. XELJANZ XR [Suspect]
     Active Substance: TOFACITINIB CITRATE
     Indication: RHEUMATOID ARTHRITIS
     Dosage: 11 MG, DAILY
     Route: 048
     Dates: start: 20200420
  2. ADVIL [Concomitant]
     Active Substance: IBUPROFEN
     Dosage: 200 MG
  3. XELJANZ XR [Suspect]
     Active Substance: TOFACITINIB CITRATE
     Dosage: 11 MG, DAILY
     Route: 048
     Dates: start: 20200423
  4. GABAPENTIN. [Concomitant]
     Active Substance: GABAPENTIN
     Dosage: 100 MG

REACTIONS (4)
  - Pain [Unknown]
  - Product dose omission issue [Unknown]
  - Swelling [Unknown]
  - Stress [Unknown]

NARRATIVE: CASE EVENT DATE: 202008
